FAERS Safety Report 7208772-8 (Version None)
Quarter: 2011Q1

REPORT INFORMATION
  Report Type: 
  Country: None (occurrence: None)
  Receive Date: 20110104
  Receipt Date: 20101230
  Transmission Date: 20110831
  Serious: Yes (Hospitalization)
  Sender: FDA-Public Use
  Company Number: US-PFIZER INC-2010181989

PATIENT
  Sex: Female
  Weight: 68 kg

DRUGS (4)
  1. SYNTHROID [Concomitant]
     Dosage: 0.075 MG, 1X/DAY
     Route: 048
  2. LIPITOR [Suspect]
     Indication: CEREBROVASCULAR ACCIDENT PROPHYLAXIS
     Dosage: 10 MG, 1X/DAY
     Route: 048
     Dates: start: 19920101, end: 20100801
  3. METOPROLOL [Concomitant]
     Dosage: 50 MG, 2X/DAY
     Route: 048
  4. IMDUR [Concomitant]
     Dosage: 30 MG, 1X/DAY
     Route: 048

REACTIONS (1)
  - CEREBROVASCULAR ACCIDENT [None]
